FAERS Safety Report 5235066-2 (Version None)
Quarter: 2007Q1

REPORT INFORMATION
  Report Type: 
  Country: None (occurrence: None)
  Receive Date: 20070207
  Receipt Date: 20041028
  Transmission Date: 20070707
  Serious: Yes (Other)
  Sender: FDA-Public Use
  Company Number: CHPA2004US07068

PATIENT
  Sex: Female

DRUGS (1)
  1. TRIAMINIC SRT [Suspect]
     Dosage: UNK, UNK, ORAL
     Route: 048
     Dates: start: 20041028

REACTIONS (2)
  - PHARYNGOLARYNGEAL PAIN [None]
  - URTICARIA [None]
